FAERS Safety Report 7111665-8 (Version None)
Quarter: 2010Q4

REPORT INFORMATION
  Report Type: 
  Country: None (occurrence: None)
  Receive Date: 20101118
  Receipt Date: 20101109
  Transmission Date: 20110411
  Serious: Yes (Disabling, Other)
  Sender: FDA-Public Use
  Company Number: US-PFIZER INC-2010143781

PATIENT
  Sex: Female
  Weight: 91 kg

DRUGS (5)
  1. LYRICA [Suspect]
     Indication: ANXIETY DISORDER
     Dosage: 150 MG, 2X/DAY
     Route: 048
  2. LYRICA [Suspect]
     Indication: OFF LABEL USE
  3. ZOLPIDEM [Concomitant]
     Dosage: 80 MG, 1X/DAY
  4. WELLBUTRIN XL [Concomitant]
     Dosage: 300 MG, 1X/DAY
  5. SEROQUEL [Concomitant]
     Indication: SLEEP DISORDER
     Dosage: 75 MG, 1X/DAY

REACTIONS (2)
  - BIPOLAR DISORDER [None]
  - POST-TRAUMATIC STRESS DISORDER [None]
